FAERS Safety Report 10243261 (Version 2)
Quarter: 2014Q2

REPORT INFORMATION
  Report Type: Spontaneous
  Country: CA (occurrence: CA)
  Receive Date: 20140618
  Receipt Date: 20140618
  Transmission Date: 20141212
  Serious: Yes (Other)
  Sender: FDA-Public Use
  Company Number: CA-JNJFOC-20131203448

PATIENT
  Sex: Female

DRUGS (2)
  1. TRAMACET [Suspect]
     Indication: ARTHRALGIA
     Route: 048
     Dates: start: 201308
  2. PREDNISONE [Concomitant]
     Indication: PRODUCT USED FOR UNKNOWN INDICATION
     Route: 065

REACTIONS (5)
  - Knee arthroplasty [Unknown]
  - Rash pruritic [Recovered/Resolved]
  - Hypersensitivity [Unknown]
  - Rash erythematous [Unknown]
  - Headache [Recovered/Resolved]
